FAERS Safety Report 25672791 (Version 1)
Quarter: 2025Q3

REPORT INFORMATION
  Report Type: Spontaneous
  Country: US (occurrence: US)
  Receive Date: 20250812
  Receipt Date: 20250812
  Transmission Date: 20251021
  Serious: No
  Sender: ALEXION PHARMACEUTICALS
  Company Number: US-AstraZeneca-CH-00928514A

PATIENT
  Sex: Female

DRUGS (1)
  1. SYMLIN [Suspect]
     Active Substance: PRAMLINTIDE ACETATE
     Indication: Type 1 diabetes mellitus
     Route: 065

REACTIONS (4)
  - Blood glucose decreased [Unknown]
  - Product use issue [Unknown]
  - Insulin therapy [Unknown]
  - Product prescribing issue [Unknown]
